FAERS Safety Report 5777499-1 (Version None)
Quarter: 2008Q2

REPORT INFORMATION
  Report Type: 
  Country: None (occurrence: None)
  Receive Date: 20080618
  Receipt Date: 20080609
  Transmission Date: 20081010
  Serious: Yes (Hospitalization)
  Sender: FDA-Public Use
  Company Number: FR-AMGEN-UK274712

PATIENT
  Sex: Male

DRUGS (6)
  1. ARANESP [Suspect]
     Indication: DIALYSIS
     Route: 065
     Dates: start: 20071102, end: 20071102
  2. LOPRIL [Concomitant]
     Route: 048
  3. AMLOR [Concomitant]
     Route: 048
  4. PANTOPRAZOLE SODIUM [Concomitant]
     Route: 048
  5. ATARAX [Concomitant]
     Route: 048
  6. NEBIVOLOL HCL [Concomitant]
     Route: 048

REACTIONS (2)
  - MALIGNANT HYPERTENSION [None]
  - OVERDOSE [None]
